FAERS Safety Report 24598288 (Version 4)
Quarter: 2025Q4

REPORT INFORMATION
  Report Type: Spontaneous
  Country: US (occurrence: US)
  Receive Date: 20241110
  Receipt Date: 20251112
  Transmission Date: 20260117
  Serious: No
  Sender: SANOFI AVENTIS
  Company Number: US-SA-2024SA312315

PATIENT
  Age: 52 Year
  Sex: Female

DRUGS (3)
  1. DUPIXENT [Suspect]
     Active Substance: DUPILUMAB
     Indication: Eczema
     Dosage: 600 MG, 1X
     Route: 058
     Dates: start: 202404, end: 202404
  2. DUPIXENT [Suspect]
     Active Substance: DUPILUMAB
     Indication: Pruritus
     Dosage: 300 MG, QOW
     Route: 058
     Dates: start: 2024, end: 2024
  3. DUPIXENT [Suspect]
     Active Substance: DUPILUMAB
     Dosage: 300 MG, QOW
     Route: 058
     Dates: end: 202505

REACTIONS (17)
  - Asthma [Recovered/Resolved]
  - Dyspnoea [Not Recovered/Not Resolved]
  - Cough [Recovered/Resolved]
  - Musculoskeletal discomfort [Unknown]
  - Pruritus [Unknown]
  - Pruritus [Unknown]
  - Product dose omission issue [Unknown]
  - Injection site pain [Unknown]
  - Eczema [Unknown]
  - Urticaria [Unknown]
  - Erythema [Recovered/Resolved]
  - Rash erythematous [Unknown]
  - Pruritus [Recovered/Resolved]
  - Product dose omission in error [Unknown]
  - Arthralgia [Unknown]
  - Intentional product misuse [Unknown]
  - Product use in unapproved indication [Unknown]

NARRATIVE: CASE EVENT DATE: 20240101
